FAERS Safety Report 9693140 (Version 1)
Quarter: 2013Q4

REPORT INFORMATION
  Report Type: Spontaneous
  Country: CZ (occurrence: CZ)
  Receive Date: 20131118
  Receipt Date: 20131118
  Transmission Date: 20140711
  Serious: Yes (Other)
  Sender: FDA-Public Use
  Company Number: CZ-B.I. PHARMACEUTICALS,INC./RIDGEFIELD-2013-BI-37463GD

PATIENT
  Age: 68 Year
  Sex: Female
  Weight: 77 kg

DRUGS (2)
  1. TWYNSTA [Suspect]
     Indication: HYPERTENSION
     Dosage: TELMISARTAN/AMLODIPINE 80 MG/5 MG
  2. AMILORIDE W/HYDROCHLOROTHIAZIDE [Suspect]
     Indication: HYPERTENSION
     Dosage: HYDROCHLOROTHIAZIDE/AMILORIDE 25 MG/2.5 MG

REACTIONS (3)
  - Drug ineffective [Not Recovered/Not Resolved]
  - Neck pain [Unknown]
  - Hypoaesthesia [Unknown]
